FAERS Safety Report 25223798 (Version 4)
Quarter: 2025Q3

REPORT INFORMATION
  Report Type: Report from Study
  Country: US (occurrence: US)
  Receive Date: 20250422
  Receipt Date: 20250728
  Transmission Date: 20251021
  Serious: Yes (Other)
  Sender: ABBVIE
  Company Number: US-ABBVIE-6235228

PATIENT
  Age: 66 Year
  Sex: Female
  Weight: 63.502 kg

DRUGS (3)
  1. SKYRIZI [Suspect]
     Active Substance: RISANKIZUMAB-RZAA
     Indication: Crohn^s disease
     Route: 058
     Dates: start: 202401
  2. LETROZOLE [Concomitant]
     Active Substance: LETROZOLE
     Indication: Prophylaxis
     Dates: end: 202506
  3. ESTRADIOL [Concomitant]
     Active Substance: ESTRADIOL
     Indication: Hot flush

REACTIONS (7)
  - Breast cancer female [Recovering/Resolving]
  - Arthralgia [Not Recovered/Not Resolved]
  - Malaise [Unknown]
  - Muscular weakness [Not Recovered/Not Resolved]
  - Illness [Unknown]
  - Graves^ disease [Recovering/Resolving]
  - Osteoporosis [Not Recovered/Not Resolved]

NARRATIVE: CASE EVENT DATE: 20241101
